FAERS Safety Report 5308653-0 (Version None)
Quarter: 2007Q2

REPORT INFORMATION
  Report Type: 
  Country: None (occurrence: None)
  Receive Date: 20070426
  Receipt Date: 20070418
  Transmission Date: 20071010
  Serious: Yes (Other)
  Sender: FDA-Public Use
  Company Number: 2006AP05802

PATIENT
  Age: 61 Year
  Sex: Male
  Weight: 55 kg

DRUGS (6)
  1. IRESSA [Suspect]
     Indication: LUNG ADENOCARCINOMA
     Route: 048
     Dates: start: 20061114, end: 20061120
  2. LEUCOSONUM TABLET [Concomitant]
     Indication: LEUKOPENIA
     Route: 048
     Dates: start: 20060508
  3. NOVOLIN R [Concomitant]
     Route: 041
     Dates: start: 20060326
  4. FAMOTIDINE [Concomitant]
     Indication: GASTRIC PH DECREASED
     Route: 041
     Dates: start: 20060608
  5. HEPARIN/OTHER ANTICOAGULANTS [Concomitant]
     Indication: ANTICOAGULANT THERAPY
  6. NOVAMIN [Concomitant]
     Route: 041
     Dates: start: 20060326

REACTIONS (5)
  - ABASIA [None]
  - FAECAL INCONTINENCE [None]
  - MENTAL DISORDER [None]
  - RETINAL HAEMORRHAGE [None]
  - URINARY INCONTINENCE [None]
